FAERS Safety Report 26185101 (Version 1)
Quarter: 2025Q4

REPORT INFORMATION
  Report Type: Report from Study
  Country: ZA (occurrence: ZA)
  Receive Date: 20251222
  Receipt Date: 20251222
  Transmission Date: 20260117
  Serious: Yes (Other)
  Sender: ROCHE
  Company Number: ZA-ROCHE-10000257689

PATIENT
  Age: 73 Year
  Sex: Female

DRUGS (4)
  1. VABYSMO [Suspect]
     Active Substance: FARICIMAB-SVOA
     Indication: Diabetic retinal oedema
     Dosage: 2ND INJECTION: 08-JAN-2025?3RD INJECTION:  12-MAR-2025?4TH INJECTION: 07-MAY-2025
     Dates: start: 20241104
  2. VABYSMO [Suspect]
     Active Substance: FARICIMAB-SVOA
     Indication: Macular degeneration
  3. VABYSMO [Suspect]
     Active Substance: FARICIMAB-SVOA
     Indication: Neovascular age-related macular degeneration
  4. OZURDEX [Concomitant]
     Active Substance: DEXAMETHASONE

REACTIONS (4)
  - Optical coherence tomography abnormal [Not Recovered/Not Resolved]
  - Visual acuity tests abnormal [Not Recovered/Not Resolved]
  - Off label use [Unknown]
  - Retinal thickening [Unknown]

NARRATIVE: CASE EVENT DATE: 20250411
